FAERS Safety Report 12632395 (Version 2)
Quarter: 2016Q3

REPORT INFORMATION
  Report Type: Spontaneous
  Country: US (occurrence: US)
  Receive Date: 20160808
  Receipt Date: 20160808
  Transmission Date: 20161109
  Serious: No
  Sender: FDA-Public Use
  Company Number: US-BEH-2016062703

PATIENT
  Sex: Female
  Weight: 54 kg

DRUGS (27)
  1. INDOCIN [Concomitant]
     Active Substance: INDOMETHACIN\INDOMETHACIN SODIUM
  2. FLAGYL [Concomitant]
     Active Substance: METRONIDAZOLE\METRONIDAZOLE HYDROCHLORIDE
  3. VITAMIN D [Concomitant]
     Active Substance: CHOLECALCIFEROL
  4. SODIUM CHLORIDE. [Concomitant]
     Active Substance: SODIUM CHLORIDE
  5. CEPHALEXIN. [Concomitant]
     Active Substance: CEPHALEXIN
  6. CLEOCIN [Concomitant]
     Active Substance: CLINDAMYCIN PHOSPHATE
  7. ATENOLOL. [Concomitant]
     Active Substance: ATENOLOL
  8. ZETIA [Concomitant]
     Active Substance: EZETIMIBE
  9. RESTASIS [Concomitant]
     Active Substance: CYCLOSPORINE
  10. ZOFRAN [Concomitant]
     Active Substance: ONDANSETRON HYDROCHLORIDE
  11. HYDROXYZINE [Concomitant]
     Active Substance: HYDROXYZINE\HYDROXYZINE HYDROCHLORIDE
  12. ANZEMET [Concomitant]
     Active Substance: DOLASETRON MESYLATE
  13. PHENERGAN [Concomitant]
     Active Substance: PROMETHAZINE HYDROCHLORIDE
  14. EPIPEN [Concomitant]
     Active Substance: EPINEPHRINE
  15. HIZENTRA [Suspect]
     Active Substance: HUMAN IMMUNOGLOBULIN G
     Route: 058
  16. HIZENTRA [Suspect]
     Active Substance: HUMAN IMMUNOGLOBULIN G
     Route: 058
  17. DIPHENHYDRAMINE. [Concomitant]
     Active Substance: DIPHENHYDRAMINE
  18. ADVAIR HFA [Concomitant]
     Active Substance: FLUTICASONE PROPIONATE\SALMETEROL XINAFOATE
  19. MAXALT [Concomitant]
     Active Substance: RIZATRIPTAN BENZOATE
  20. PREVACID [Concomitant]
     Active Substance: LANSOPRAZOLE
  21. HIZENTRA [Suspect]
     Active Substance: HUMAN IMMUNOGLOBULIN G
     Indication: IMMUNODEFICIENCY COMMON VARIABLE
     Route: 058
  22. LIDOCAINE/PRILOCAINE [Concomitant]
     Active Substance: LIDOCAINE\PRILOCAINE
  23. DOMPERIDONE [Concomitant]
     Active Substance: DOMPERIDONE
  24. DIAZEPAM. [Concomitant]
     Active Substance: DIAZEPAM
  25. MORPHINE SULFATE. [Concomitant]
     Active Substance: MORPHINE SULFATE
  26. LIDODERM [Concomitant]
     Active Substance: LIDOCAINE
  27. ALBUTEROL. [Concomitant]
     Active Substance: ALBUTEROL

REACTIONS (5)
  - Bronchitis [Unknown]
  - Head discomfort [Unknown]
  - Chest discomfort [Unknown]
  - Limb discomfort [Unknown]
  - Chronic sinusitis [Unknown]
